FAERS Safety Report 19310620 (Version 6)
Quarter: 2021Q3

REPORT INFORMATION
  Report Type: Report from Study
  Country: PT (occurrence: PT)
  Receive Date: 20210526
  Receipt Date: 20210921
  Transmission Date: 20211014
  Serious: Yes (Death)
  Sender: FDA-Public Use
  Company Number: PT-ROCHE-2836552

PATIENT
  Age: 73 Year
  Sex: Male
  Weight: 63.2 kg

DRUGS (18)
  1. CISPLATIN. [Suspect]
     Active Substance: CISPLATIN
     Indication: MALIGNANT NEOPLASM OF UNKNOWN PRIMARY SITE
     Dosage: DATE OF LAST DOSE OF TREATMENT STUDY DRUG CISPLATIN PRIOR TO SAE/AESI ONSET 28 APR 2021 120.4 MG?60?
     Route: 042
     Dates: start: 20210428
  2. CARBOPLATIN. [Suspect]
     Active Substance: CARBOPLATIN
     Indication: MALIGNANT NEOPLASM OF UNKNOWN PRIMARY SITE
     Dosage: DOSE OF LAST INDUCTION STUDY DRUG CARBOPLATIN ADMINISTERED PRIOR TO SAE/AESI ONSET 10 MAR 2021 557.6
     Route: 042
     Dates: start: 20210310
  3. PANTOPRAZOLE [Concomitant]
     Active Substance: PANTOPRAZOLE
     Route: 048
     Dates: start: 20210107
  4. FUROSEMIDE. [Concomitant]
     Active Substance: FUROSEMIDE
     Route: 048
     Dates: start: 20210107
  5. BISOPROLOL [Concomitant]
     Active Substance: BISOPROLOL
     Route: 048
  6. INSULINE NPH [Concomitant]
     Active Substance: INSULIN PORK\INSULIN PURIFIED PORK
     Dosage: 30 IU
     Route: 058
     Dates: start: 20210408, end: 20210420
  7. BROMAZEPAM [Concomitant]
     Active Substance: BROMAZEPAM
     Dates: start: 20210511
  8. ATEZOLIZUMAB. [Suspect]
     Active Substance: ATEZOLIZUMAB
     Indication: MALIGNANT NEOPLASM OF UNKNOWN PRIMARY SITE
     Dosage: DOSE OF LAST TREATMENT STUDY DRUG ATEZOLIZUMAB ADMINISTERED PRIOR TO SAE/AESI ONSET 28 APR 2021 1200
     Route: 042
     Dates: start: 20210428
  9. GEMCITABINE. [Suspect]
     Active Substance: GEMCITABINE
     Indication: MALIGNANT NEOPLASM OF UNKNOWN PRIMARY SITE
     Dosage: DATE OF LAST DOSE OF TREATMENT STUDY DRUG GEMCITABIN PRIOR TO SAE/AESI ONSET 05 MAY 2021 1740 MG
     Route: 042
     Dates: start: 20210505
  10. NYSTATINE [Concomitant]
     Active Substance: NYSTATIN
     Route: 048
     Dates: start: 20210511
  11. PREDNISOLONE. [Concomitant]
     Active Substance: PREDNISOLONE
     Route: 048
     Dates: start: 20210216, end: 20210420
  12. LEPICORTINOLO [Concomitant]
     Active Substance: PREDNISOLONE
     Route: 048
     Dates: start: 20210420
  13. LEPICORTINOLO [Concomitant]
     Active Substance: PREDNISOLONE
     Route: 048
     Dates: start: 20210216, end: 20210419
  14. PACLITAXEL. [Suspect]
     Active Substance: PACLITAXEL
     Indication: MALIGNANT NEOPLASM OF UNKNOWN PRIMARY SITE
     Dosage: DOSE OF LAST INDUCTION STUDY DRUG PACLITAXEL ADMINISTERED PRIOR TO SAE/AESI ONSET 10 MAR 2021 302.75
     Route: 042
     Dates: start: 20210310
  15. ENOXAPARINE SODIQUE [Concomitant]
     Active Substance: ENOXAPARIN SODIUM
     Route: 048
     Dates: start: 20210126
  16. INSULINE NPH [Concomitant]
     Active Substance: INSULIN PORK\INSULIN PURIFIED PORK
     Route: 042
     Dates: start: 20210326
  17. INSULINE NPH [Concomitant]
     Active Substance: INSULIN PORK\INSULIN PURIFIED PORK
     Dosage: 24 IU
     Route: 058
     Dates: start: 20210421
  18. TRAMADOL. [Concomitant]
     Active Substance: TRAMADOL
     Route: 048
     Dates: start: 20210511

REACTIONS (1)
  - Death [Fatal]

NARRATIVE: CASE EVENT DATE: 20210512
